FAERS Safety Report 5802769-8 (Version None)
Quarter: 2008Q3

REPORT INFORMATION
  Report Type: 
  Country: None (occurrence: None)
  Receive Date: 20080708
  Receipt Date: 20080624
  Transmission Date: 20090109
  Serious: Yes (Disabling)
  Sender: FDA-Public Use
  Company Number: US-ELI_LILLY_AND_COMPANY-US200806004243

PATIENT
  Sex: Female
  Weight: 59.41 kg

DRUGS (11)
  1. FORTEO [Suspect]
     Indication: MULTIPLE FRACTURES
     Dosage: 20 UG, DAILY (1/D)
     Dates: start: 20050831, end: 20050901
  2. FORTEO [Suspect]
     Dosage: 20 UG, QOD
     Dates: start: 20050101, end: 20060101
  3. ALLEGRA [Concomitant]
     Dosage: 180 MG, DAILY (1/D)
  4. ALEVE [Concomitant]
     Dosage: UNK, AS NEEDED
  5. ADVAIR DISKUS 100/50 [Concomitant]
     Indication: ASTHMA
  6. SINGULAIR [Concomitant]
     Indication: ASTHMA
     Dosage: 5 MG, DAILY (1/D)
  7. ALBUTEROL [Concomitant]
     Indication: ASTHMA
  8. AMITRIPTYLINE HCL [Concomitant]
     Indication: PAIN
     Dosage: UNK, EACH EVENING
  9. LIDOCAINE [Concomitant]
     Indication: PAIN
  10. DISALCID [Concomitant]
     Indication: PAIN
  11. DARVOCET-N 100 [Concomitant]
     Indication: PAIN IN JAW
     Dosage: UNK, AS NEEDED

REACTIONS (6)
  - ABDOMINAL PAIN [None]
  - BREAST MASS [None]
  - COSTOCHONDRITIS [None]
  - HEADACHE [None]
  - N-TELOPEPTIDE URINE DECREASED [None]
  - NAUSEA [None]
